FAERS Safety Report 14239944 (Version 1)
Quarter: 2017Q4

REPORT INFORMATION
  Report Type: Spontaneous
  Country: US (occurrence: US)
  Receive Date: 20171130
  Receipt Date: 20171130
  Transmission Date: 20180321
  Serious: Yes (Hospitalization)
  Sender: FDA-Public Use
  Company Number: US-ASTRAZENECA-2017SF20293

PATIENT
  Age: 23 Year
  Sex: Female
  Weight: 105.7 kg

DRUGS (7)
  1. SEROQUEL [Suspect]
     Active Substance: QUETIAPINE FUMARATE
     Indication: SCHIZOPHRENIA
     Dosage: GENERIC (450MG TWO TIMES A DAY WHEN SHE NEEDS A LOW DOSE )
     Route: 048
  2. SEROQUEL [Suspect]
     Active Substance: QUETIAPINE FUMARATE
     Indication: SCHIZOPHRENIA
     Route: 048
     Dates: start: 2011, end: 2011
  3. SEROQUEL [Suspect]
     Active Substance: QUETIAPINE FUMARATE
     Indication: SCHIZOPHRENIA
     Dosage: GENERIC
     Route: 048
     Dates: start: 2011
  4. ATIVAN [Concomitant]
     Active Substance: LORAZEPAM
     Indication: HEART RATE DECREASED
     Route: 042
  5. SEROQUEL [Suspect]
     Active Substance: QUETIAPINE FUMARATE
     Indication: SCHIZOPHRENIA
     Route: 048
     Dates: start: 2011, end: 2011
  6. SEROQUEL [Suspect]
     Active Substance: QUETIAPINE FUMARATE
     Indication: SCHIZOPHRENIA
     Route: 048
     Dates: start: 2011
  7. ATIVAN [Concomitant]
     Active Substance: LORAZEPAM
     Indication: HEART RATE DECREASED
     Route: 048

REACTIONS (15)
  - Mania [Unknown]
  - Agitation [Not Recovered/Not Resolved]
  - Anxiety [Not Recovered/Not Resolved]
  - Weight increased [Not Recovered/Not Resolved]
  - Constipation [Not Recovered/Not Resolved]
  - Intentional product misuse [Not Recovered/Not Resolved]
  - Product substitution issue [Not Recovered/Not Resolved]
  - Blood pressure increased [Unknown]
  - Psychotic disorder [Unknown]
  - Hypokinesia [Recovering/Resolving]
  - Drug effect delayed [Recovered/Resolved]
  - Heart rate increased [Unknown]
  - Gait disturbance [Recovering/Resolving]
  - Fluid intake reduced [Not Recovered/Not Resolved]
  - Hypertension [Unknown]

NARRATIVE: CASE EVENT DATE: 2011
